FAERS Safety Report 9834332 (Version 1)
Quarter: 2014Q1

REPORT INFORMATION
  Report Type: Report from Study
  Country: US (occurrence: US)
  Receive Date: 20140122
  Receipt Date: 20140122
  Transmission Date: 20141002
  Serious: Yes (Other)
  Sender: FDA-Public Use
  Company Number: US-ROCHE-1334149

PATIENT
  Sex: 0

DRUGS (8)
  1. NAPROXEN [Suspect]
     Indication: MIGRAINE
     Route: 065
  2. NARATRIPTAN [Suspect]
     Indication: MIGRAINE
     Route: 065
  3. ALMOTRIPTAN [Suspect]
     Indication: MIGRAINE
     Route: 065
  4. FROVATRIPTAN [Suspect]
     Indication: MIGRAINE
     Route: 065
  5. SUMATRIPTAN [Suspect]
     Indication: MIGRAINE
     Route: 065
  6. RIZATRIPTAN [Suspect]
     Indication: MIGRAINE
     Route: 065
  7. ELETRIPTAN [Suspect]
     Indication: MIGRAINE
     Route: 065
  8. ZOLMITRIPTAN [Suspect]
     Indication: MIGRAINE
     Route: 065

REACTIONS (1)
  - Migraine [Unknown]
